FAERS Safety Report 21644247 (Version 1)
Quarter: 2022Q4

REPORT INFORMATION
  Report Type: Spontaneous
  Country: US (occurrence: None)
  Receive Date: 20221125
  Receipt Date: 20221125
  Transmission Date: 20230113
  Serious: Yes (Life-Threatening)
  Sender: FDA-Public Use
  Company Number: 2022A384326

PATIENT
  Sex: Male
  Weight: 99.8 kg

DRUGS (2)
  1. FARXIGA [Suspect]
     Active Substance: DAPAGLIFLOZIN PROPANEDIOL
     Indication: Blood glucose increased
     Dosage: 5.0MG UNKNOWN
     Route: 048
     Dates: start: 20210601, end: 20210611
  2. FARXIGA [Suspect]
     Active Substance: DAPAGLIFLOZIN PROPANEDIOL
     Indication: Blood glucose increased
     Dosage: 5.0MG UNKNOWN
     Route: 048
     Dates: start: 202101, end: 20210614

REACTIONS (14)
  - Anaphylactic reaction [Unknown]
  - Penile burning sensation [Unknown]
  - Vitamin B6 increased [Unknown]
  - Penile discharge [Unknown]
  - Memory impairment [Unknown]
  - Vitamin B12 increased [Unknown]
  - Pruritus genital [Not Recovered/Not Resolved]
  - Chromaturia [Unknown]
  - Stress [Unknown]
  - Thyroid disorder [Unknown]
  - Dyspareunia [Unknown]
  - Spermatozoa abnormal [Unknown]
  - Sexual dysfunction [Unknown]
  - Genital infection fungal [Unknown]
